FAERS Safety Report 26181704 (Version 1)
Quarter: 2025Q4

REPORT INFORMATION
  Report Type: Spontaneous
  Country: US (occurrence: US)
  Receive Date: 20251221
  Receipt Date: 20251221
  Transmission Date: 20260117
  Serious: Yes (Hospitalization, Other)
  Sender: PURDUE
  Company Number: US-PURDUE-USA-2025-0323112

PATIENT
  Age: 35 Year
  Sex: Female

DRUGS (11)
  1. DEXTROAMPHETAMINE SACCHARATE, AMPHETAMINE ASPARTATE, DEXTROAMPHETAMINE [Suspect]
     Active Substance: AMPHETAMINE ASPARTATE\AMPHETAMINE SULFATE\DEXTROAMPHETAMINE SACCHARATE\DEXTROAMPHETAMINE SULFATE
     Indication: Attention deficit hyperactivity disorder
     Dosage: 10 MILLIGRAM, DAILY
     Route: 048
  2. DEXTROAMPHETAMINE SACCHARATE, AMPHETAMINE ASPARTATE, DEXTROAMPHETAMINE [Suspect]
     Active Substance: AMPHETAMINE ASPARTATE\AMPHETAMINE SULFATE\DEXTROAMPHETAMINE SACCHARATE\DEXTROAMPHETAMINE SULFATE
     Dosage: 15 MILLIGRAM, DAILY
     Route: 048
  3. PRAZOSIN [Suspect]
     Active Substance: PRAZOSIN
     Indication: Product used for unknown indication
     Dosage: 2 MILLIGRAM, NIGHTLY
     Route: 065
  4. CLONAZEPAM [Suspect]
     Active Substance: CLONAZEPAM
     Indication: Product used for unknown indication
     Dosage: 0.5 MILLIGRAM, BID PRN
     Route: 065
  5. VILAZODONE [Suspect]
     Active Substance: VILAZODONE
     Indication: Antipsychotic therapy
     Dosage: 40 MILLIGRAM, DAILY FOR OVER A YEAR
     Route: 065
  6. VILAZODONE [Suspect]
     Active Substance: VILAZODONE
     Dosage: 20 MILLIGRAM, DAILY
     Route: 065
  7. LURASIDONE [Suspect]
     Active Substance: LURASIDONE
     Indication: Antipsychotic therapy
     Dosage: 60 MILLIGRAM, DAILY FOR 4-5 MONTHS
     Route: 065
  8. LURASIDONE [Suspect]
     Active Substance: LURASIDONE
     Dosage: 40 MILLIGRAM
     Route: 065
  9. HALOPERIDOL [Suspect]
     Active Substance: HALOPERIDOL
     Indication: Antipsychotic therapy
     Dosage: 5 MILLIGRAM, DAILY FOR ALMOST A YEAR
     Route: 065
  10. BUPROPION [Suspect]
     Active Substance: BUPROPION
     Indication: Antipsychotic therapy
     Dosage: 300 MILLIGRAM, DAILY FOR A YEAR
     Route: 065
  11. ARIPIPRAZOLE [Suspect]
     Active Substance: ARIPIPRAZOLE
     Indication: Antipsychotic therapy
     Dosage: 10 MILLIGRAM, DAILY FOR 2-3 MONTHS
     Route: 065

REACTIONS (6)
  - Tardive dyskinesia [Recovering/Resolving]
  - Dystonia [Recovering/Resolving]
  - Hallucination, auditory [Not Recovered/Not Resolved]
  - Delusion [Unknown]
  - Depression [Not Recovered/Not Resolved]
  - Extrapyramidal disorder [Unknown]
